FAERS Safety Report 7884869-4 (Version None)
Quarter: 2011Q4

REPORT INFORMATION
  Report Type: 
  Country: None (occurrence: None)
  Receive Date: 20111102
  Receipt Date: 20111026
  Transmission Date: 20120403
  Serious: Yes (Other)
  Sender: FDA-Public Use
  Company Number: PHHY2011CN95363

PATIENT
  Age: 35 Year
  Sex: Female

DRUGS (1)
  1. DIOVAN [Suspect]
     Indication: HYPERTENSION
     Dosage: 80 MG, PER DAY
     Route: 048

REACTIONS (9)
  - POLLAKIURIA [None]
  - MYALGIA [None]
  - DIZZINESS [None]
  - INFLAMMATION [None]
  - PALPITATIONS [None]
  - FATIGUE [None]
  - NASAL OBSTRUCTION [None]
  - BLOOD PRESSURE INADEQUATELY CONTROLLED [None]
  - HEART RATE INCREASED [None]
